FAERS Safety Report 6699223-0 (Version None)
Quarter: 2010Q2

REPORT INFORMATION
  Report Type: 
  Country: None (occurrence: None)
  Receive Date: 20100427
  Receipt Date: 20100409
  Transmission Date: 20101027
  Serious: Yes (Other)
  Sender: FDA-Public Use
  Company Number: GB-GENENTECH-300943

PATIENT
  Sex: Female

DRUGS (9)
  1. XOLAIR [Suspect]
     Indication: ASTHMA
     Dosage: 300 MG, UNK
     Dates: start: 20070531
  2. SYMBICORT [Suspect]
     Indication: DRUG USE FOR UNKNOWN INDICATION
  3. SALBUTAMOL [Concomitant]
     Indication: DRUG USE FOR UNKNOWN INDICATION
  4. MONTELUKAST SODIUM [Concomitant]
     Indication: DRUG USE FOR UNKNOWN INDICATION
  5. FRUSEMIDE [Concomitant]
     Indication: DRUG USE FOR UNKNOWN INDICATION
  6. IRBESARTAN [Concomitant]
     Indication: DRUG USE FOR UNKNOWN INDICATION
  7. NOVORAPID [Concomitant]
     Indication: DRUG USE FOR UNKNOWN INDICATION
  8. IRON [Concomitant]
     Indication: DRUG USE FOR UNKNOWN INDICATION
  9. INSULIN GLARGINE [Concomitant]
     Indication: DRUG USE FOR UNKNOWN INDICATION

REACTIONS (3)
  - ASTHMA [None]
  - FORCED EXPIRATORY VOLUME DECREASED [None]
  - QUALITY OF LIFE DECREASED [None]
